FAERS Safety Report 6447502-4 (Version None)
Quarter: 2009Q4

REPORT INFORMATION
  Report Type: 
  Country: None (occurrence: None)
  Receive Date: 20091119
  Receipt Date: 20081203
  Transmission Date: 20100525
  Serious: Yes (Hospitalization)
  Sender: FDA-Public Use
  Company Number: US-AMGEN-KDL287148

PATIENT
  Sex: Male
  Weight: 74.9 kg

DRUGS (10)
  1. ENBREL [Suspect]
     Indication: PSORIATIC ARTHROPATHY
     Route: 058
     Dates: start: 20030101, end: 20080501
  2. ENBREL [Suspect]
     Indication: PSORIASIS
  3. ENBREL [Suspect]
     Indication: JUVENILE ARTHRITIS
  4. NORVASC [Concomitant]
     Dates: start: 20030101
  5. DYAZIDE [Concomitant]
     Dates: start: 20030101
  6. LISINOPRIL [Concomitant]
     Dates: start: 20030101
  7. GLUCOTROL [Concomitant]
     Dates: start: 20030101
  8. CLOZAPINE [Concomitant]
     Dates: start: 20030101
  9. ZOLOFT [Concomitant]
     Dates: start: 20030101
  10. UNSPECIFIED MEDICATION [Concomitant]
     Dates: start: 20030101

REACTIONS (1)
  - DEMYELINATION [None]
